FAERS Safety Report 5116350-X (Version None)
Quarter: 2006Q3

REPORT INFORMATION
  Report Type: 
  Country: None (occurrence: None)
  Receive Date: 20060927
  Receipt Date: 20060922
  Transmission Date: 20061208
  Serious: Yes (Hospitalization)
  Sender: FDA-Public Use
  Company Number: KR-ALLERGAN-0605479US

PATIENT
  Sex: Male

DRUGS (1)
  1. BOTOX [Suspect]
     Indication: PROSTATIC OBSTRUCTION
     Dates: start: 20060807, end: 20060807

REACTIONS (4)
  - ABDOMINAL PAIN [None]
  - ASTHENIA [None]
  - DIARRHOEA [None]
  - URINARY RETENTION [None]
